FAERS Safety Report 14315815 (Version 4)
Quarter: 2018Q1

REPORT INFORMATION
  Report Type: Spontaneous
  Country: CN (occurrence: CN)
  Receive Date: 20171221
  Receipt Date: 20180119
  Transmission Date: 20180509
  Serious: Yes (Life-Threatening, Hospitalization, Other)
  Sender: FDA-Public Use
  Company Number: CN-ASTRAZENECA-2017SF29153

PATIENT
  Age: 60 Year
  Sex: Female

DRUGS (1)
  1. IRESSA [Suspect]
     Active Substance: GEFITINIB
     Indication: NON-SMALL CELL LUNG CANCER
     Route: 048
     Dates: end: 20171214

REACTIONS (6)
  - Pericardial effusion malignant [Recovering/Resolving]
  - Malignant neoplasm progression [Unknown]
  - Multiple organ dysfunction syndrome [Recovering/Resolving]
  - Hepatic failure [Unknown]
  - Cardiac failure [Unknown]
  - Liver injury [Unknown]
